FAERS Safety Report 7325999-5 (Version None)
Quarter: 2011Q1

REPORT INFORMATION
  Report Type: 
  Country: None (occurrence: None)
  Receive Date: 20110302
  Receipt Date: 20110228
  Transmission Date: 20110831
  Serious: Yes (Other)
  Sender: FDA-Public Use
  Company Number: GB-SP-2011-00884

PATIENT
  Age: 60 Year
  Sex: Female

DRUGS (5)
  1. SIMVASTATIN [Concomitant]
  2. MUPIROCIN [Concomitant]
  3. BENZYLPENICILLIN [Concomitant]
  4. LEVOTHYROXINE [Concomitant]
     Indication: HYPOTHYROIDISM
  5. IMMUCYST [Suspect]
     Indication: PRODUCT USED FOR UNKNOWN INDICATION
     Dosage: NOT REPORTED
     Route: 065

REACTIONS (5)
  - OEDEMA MOUTH [None]
  - TACHYCARDIA [None]
  - LOCAL SWELLING [None]
  - PYREXIA [None]
  - BLISTER [None]
